FAERS Safety Report 25947704 (Version 1)
Quarter: 2025Q4

REPORT INFORMATION
  Report Type: Spontaneous
  Country: EU (occurrence: EU)
  Receive Date: 20251022
  Receipt Date: 20251022
  Transmission Date: 20260117
  Serious: Yes (Disabling)
  Sender: ROCHE
  Company Number: None

PATIENT
  Age: 46 Year
  Sex: Male
  Weight: 85 kg

DRUGS (1)
  1. OCREVUS [Suspect]
     Active Substance: OCRELIZUMAB
     Indication: Relapsing-remitting multiple sclerosis
     Route: 065
     Dates: start: 20250827

REACTIONS (1)
  - Muscle spasms [Not Recovered/Not Resolved]
